FAERS Safety Report 17733769 (Version 1)
Quarter: 2020Q2

REPORT INFORMATION
  Report Type: Spontaneous
  Country: US (occurrence: US)
  Receive Date: 20200430
  Receipt Date: 20200430
  Transmission Date: 20200714
  Serious: Yes (Death, Life-Threatening, Hospitalization)
  Sender: FDA-Public Use
  Company Number: None

PATIENT
  Age: 61 Year
  Sex: Male
  Weight: 102 kg

DRUGS (1)
  1. VANCOMYCIN 2000MG (500MG VIALS X 4) [Suspect]
     Active Substance: VANCOMYCIN
     Indication: PYREXIA
     Route: 042
     Dates: start: 20200121, end: 20200121

REACTIONS (6)
  - Unresponsive to stimuli [None]
  - Flushing [None]
  - Chills [None]
  - Dyspnoea [None]
  - Blood pressure increased [None]
  - Hyperhidrosis [None]

NARRATIVE: CASE EVENT DATE: 20200121
